FAERS Safety Report 9645011 (Version 3)
Quarter: 2014Q1

REPORT INFORMATION
  Report Type: Spontaneous
  Country: US (occurrence: US)
  Receive Date: 20131025
  Receipt Date: 20140205
  Transmission Date: 20141002
  Serious: Yes (Hospitalization, Other)
  Sender: FDA-Public Use
  Company Number: 2013SP007426

PATIENT
  Age: 60 Year
  Sex: Male
  Weight: 84.4 kg

DRUGS (14)
  1. VANCOMYCIN [Suspect]
     Indication: STAPHYLOCOCCAL INFECTION
     Route: 042
     Dates: end: 20130919
  2. VANCOMYCIN [Suspect]
     Indication: OSTEOMYELITIS
     Route: 042
     Dates: end: 20130919
  3. MYCOPHENOLATE MOFETIL [Suspect]
     Indication: DERMATOMYOSITIS
     Route: 048
     Dates: start: 201207, end: 201310
  4. MYCOPHENOLATE MOFETIL [Suspect]
     Indication: PULMONARY FIBROSIS
     Route: 048
     Dates: start: 201207, end: 201310
  5. ENBREL [Suspect]
     Indication: RHEUMATOID ARTHRITIS
     Route: 058
     Dates: start: 201305, end: 201310
  6. CUBICIN [Suspect]
     Indication: STAPHYLOCOCCAL INFECTION
     Route: 042
  7. CUBICIN [Suspect]
     Indication: OSTEOMYELITIS
     Route: 042
  8. PREDNISONE [Concomitant]
  9. ASPIRIN [Concomitant]
  10. LEVOTHYROXINE [Concomitant]
  11. LISINOPRIL [Concomitant]
     Dates: end: 2013
  12. METOPROLOL [Concomitant]
     Dates: end: 2013
  13. SIMVASTATIN [Concomitant]
     Dates: end: 2013
  14. ERGOCALCIFEROL [Concomitant]

REACTIONS (39)
  - Staphylococcal infection [Recovering/Resolving]
  - Staphylococcal bacteraemia [Recovering/Resolving]
  - Osteomyelitis [Unknown]
  - Pulmonary artery dilatation [Unknown]
  - Pulmonary infarction [Unknown]
  - Pulmonary haemorrhage [Unknown]
  - Pulmonary hypertension [Unknown]
  - Pleuritic pain [Unknown]
  - Antisynthetase syndrome [Unknown]
  - Blood sodium decreased [Unknown]
  - Blood creatine phosphokinase increased [Unknown]
  - Joint swelling [Unknown]
  - Joint range of motion decreased [Unknown]
  - Herpes zoster [Unknown]
  - Computerised tomogram abnormal [Unknown]
  - Rash [Unknown]
  - Fatigue [Unknown]
  - Dizziness [Unknown]
  - Hypotension [Unknown]
  - Musculoskeletal chest pain [Recovered/Resolved]
  - Hypoaesthesia [Unknown]
  - Pruritus [Unknown]
  - Skin discolouration [Unknown]
  - Arthralgia [Unknown]
  - Drug intolerance [Unknown]
  - Pain [Unknown]
  - Pyrexia [Unknown]
  - Rheumatoid arthritis [Not Recovered/Not Resolved]
  - Coronary artery disease [Unknown]
  - Myocardial infarction [Unknown]
  - Blood pressure abnormal [Unknown]
  - Dyspnoea [Unknown]
  - Myositis [Unknown]
  - Cataract [Unknown]
  - Oedema peripheral [Unknown]
  - Rales [Unknown]
  - Gastrooesophageal reflux disease [Unknown]
  - Hypothyroidism [Unknown]
  - Infection [Unknown]
